FAERS Safety Report 7507267-1 (Version None)
Quarter: 2011Q2

REPORT INFORMATION
  Report Type: 
  Country: None (occurrence: None)
  Receive Date: 20110526
  Receipt Date: 20110519
  Transmission Date: 20111010
  Serious: Yes (Other)
  Sender: FDA-Public Use
  Company Number: US-MPIJNJ-2011-02083

PATIENT
  Age: 54 Year
  Sex: Male

DRUGS (6)
  1. RITUXIMAB [Suspect]
     Indication: AMYLOIDOSIS
  2. DEXAMETHASONE [Suspect]
     Indication: AMYLOIDOSIS
  3. VELCADE [Suspect]
  4. DEXAMETHASONE [Suspect]
  5. VELCADE [Suspect]
     Indication: AMYLOIDOSIS
  6. RITUXIMAB [Suspect]

REACTIONS (4)
  - FAECAL INCONTINENCE [None]
  - NEUROPATHY PERIPHERAL [None]
  - HYPOAESTHESIA [None]
  - METASTASES TO CENTRAL NERVOUS SYSTEM [None]
